FAERS Safety Report 6164119-X (Version None)
Quarter: 2009Q2

REPORT INFORMATION
  Report Type: 
  Country: None (occurrence: None)
  Receive Date: 20090422
  Receipt Date: 20090417
  Transmission Date: 20091009
  Serious: Yes (Other)
  Sender: FDA-Public Use
  Company Number: B0570378A

PATIENT
  Age: 88 Year
  Sex: Female

DRUGS (1)
  1. FONDAPARINUX SODIUM [Suspect]
     Route: 058

REACTIONS (5)
  - ANAEMIA [None]
  - GAIT DISTURBANCE [None]
  - PAIN IN EXTREMITY [None]
  - PERIPHERAL ARTERY ANEURYSM [None]
  - SWELLING [None]
